FAERS Safety Report 10340856 (Version 2)
Quarter: 2014Q3

REPORT INFORMATION
  Report Type: Report from Study
  Country: FR (occurrence: FR)
  Receive Date: 20140724
  Receipt Date: 20140801
  Transmission Date: 20150326
  Serious: Yes (Life-Threatening, Other)
  Sender: FDA-Public Use
  Company Number: FR-B.I. PHARMACEUTICALS,INC./RIDGEFIELD-2014-BI-33644II

PATIENT
  Age: 70 Year
  Sex: Male
  Weight: 82 kg

DRUGS (2)
  1. BIBW 2992 [Suspect]
     Active Substance: AFATINIB
     Indication: COLORECTAL CANCER METASTATIC
     Dosage: 40 MG
     Route: 048
     Dates: start: 20140717, end: 20140717
  2. CETUXIMAB [Suspect]
     Active Substance: CETUXIMAB
     Indication: COLORECTAL CANCER METASTATIC
     Dosage: MG
     Route: 042
     Dates: start: 20140717, end: 20140717

REACTIONS (1)
  - Anaphylactic shock [Recovered/Resolved]

NARRATIVE: CASE EVENT DATE: 20140717
